FAERS Safety Report 20325797 (Version 3)
Quarter: 2022Q1

REPORT INFORMATION
  Report Type: Report from Study
  Country: AU (occurrence: None)
  Receive Date: 20220112
  Receipt Date: 20220124
  Transmission Date: 20220423
  Serious: Yes (Hospitalization)
  Sender: FDA-Public Use
  Company Number: AU-ROCHE-2996182

PATIENT
  Age: 75 Year
  Sex: Female
  Weight: 70.7 kg

DRUGS (37)
  1. TIRAGOLUMAB [Suspect]
     Active Substance: TIRAGOLUMAB
     Indication: Triple negative breast cancer
     Dosage: ON 02/NOV/2021, RECEIVED THE MOST RECENT DOSE OF TIRAGOLUMAB (840 MG) PRIOR TO SAE
     Route: 042
     Dates: start: 20210608
  2. ATEZOLIZUMAB [Suspect]
     Active Substance: ATEZOLIZUMAB
     Indication: Triple negative breast cancer
     Dosage: 02/NOV/2021, RECEIVED THE MOST RECENT DOSE OF ATEZOLIZUMAB (1680 MG) PRIOR TO SAE
     Route: 042
     Dates: start: 20210608
  3. PACLITAXEL [Suspect]
     Active Substance: PACLITAXEL
     Indication: Triple negative breast cancer
     Dosage: ON 09/NOV/2021, RECEIVED THE MOST RECENT DOSE OF NAB PACLITAXEL PRIOR TO SAE
     Route: 042
     Dates: start: 20210608
  4. CORTISONE ACETATE [Concomitant]
     Active Substance: CORTISONE ACETATE
     Indication: Adrenal insufficiency
     Route: 048
     Dates: start: 202102
  5. SALT [Concomitant]
     Active Substance: SODIUM CHLORIDE
     Indication: Hyponatraemia
     Dates: start: 202102
  6. CORTISONE ACETATE [Concomitant]
     Active Substance: CORTISONE ACETATE
     Indication: Adrenal insufficiency
     Route: 048
     Dates: start: 202107
  7. LORATADINE [Concomitant]
     Active Substance: LORATADINE
     Indication: Skin toxicity
     Route: 048
     Dates: start: 20211126
  8. MENTHOL [Concomitant]
     Active Substance: MENTHOL
     Dates: start: 20211125
  9. PANTOPRAZOLE [Concomitant]
     Active Substance: PANTOPRAZOLE
     Dates: start: 20211123
  10. PANTOPRAZOLE [Concomitant]
     Active Substance: PANTOPRAZOLE
     Dates: start: 20211231, end: 20220102
  11. PARAFFIN [Concomitant]
     Active Substance: PARAFFIN
     Route: 061
     Dates: start: 20211126
  12. SULFAMETHOXAZOLE;TRIMIPRAMINE [Concomitant]
     Dates: start: 20211124
  13. BETAMETHASONE [Concomitant]
     Active Substance: BETAMETHASONE
     Route: 061
     Dates: start: 20211122
  14. PREDNISOLONE [Concomitant]
     Active Substance: PREDNISOLONE
     Route: 048
     Dates: start: 20211204, end: 20211206
  15. PREDNISOLONE [Concomitant]
     Active Substance: PREDNISOLONE
     Route: 048
     Dates: start: 20211207
  16. PREDNISOLONE [Concomitant]
     Active Substance: PREDNISOLONE
     Route: 048
     Dates: start: 20211209, end: 20211210
  17. PREDNISOLONE [Concomitant]
     Active Substance: PREDNISOLONE
     Route: 048
     Dates: start: 20211211, end: 20211217
  18. PREDNISOLONE [Concomitant]
     Active Substance: PREDNISOLONE
     Route: 048
     Dates: start: 20211218
  19. PREDNISOLONE [Concomitant]
     Active Substance: PREDNISOLONE
     Route: 048
  20. ENOXAPARIN [Concomitant]
     Active Substance: ENOXAPARIN
     Dates: start: 20211231, end: 20220101
  21. ENOXAPARIN [Concomitant]
     Active Substance: ENOXAPARIN
     Dates: start: 20220105, end: 20220109
  22. APIXABAN [Concomitant]
     Active Substance: APIXABAN
     Dates: start: 20220103, end: 20220107
  23. SLOW-K [Concomitant]
     Active Substance: POTASSIUM CHLORIDE
     Indication: Hypokalaemia
     Dates: start: 20220107, end: 20220112
  24. ACETAMINOPHEN [Concomitant]
     Active Substance: ACETAMINOPHEN
     Dates: start: 20220103, end: 20220105
  25. ACETAMINOPHEN [Concomitant]
     Active Substance: ACETAMINOPHEN
     Dates: start: 20211230, end: 20220101
  26. ONDANSETRON [Concomitant]
     Active Substance: ONDANSETRON
     Dates: start: 20220103, end: 20220103
  27. HYDROCORTISONE [Concomitant]
     Active Substance: HYDROCORTISONE
     Indication: Adrenocortical insufficiency acute
     Dates: start: 20220104, end: 20220105
  28. HYDROCORTISONE [Concomitant]
     Active Substance: HYDROCORTISONE
     Indication: Adrenal insufficiency
  29. METHYLPREDNISOLONE [Concomitant]
     Active Substance: METHYLPREDNISOLONE
     Dates: start: 20220103, end: 20220103
  30. PIPERACILLIN SODIUM\TAZOBACTAM SODIUM [Concomitant]
     Active Substance: PIPERACILLIN SODIUM\TAZOBACTAM SODIUM
     Indication: Sepsis
     Route: 042
     Dates: start: 20220103, end: 20220106
  31. SODIUM CHLORIDE [Concomitant]
     Active Substance: SODIUM CHLORIDE
     Indication: Hyponatraemia
     Dates: start: 20211231, end: 20220102
  32. CEPHALEXIN [Concomitant]
     Active Substance: CEPHALEXIN
     Indication: Urinary tract infection
     Route: 048
     Dates: start: 20220102, end: 20220106
  33. CEFAZOLIN [Concomitant]
     Active Substance: CEFAZOLIN
     Indication: Urinary tract infection
     Route: 042
     Dates: start: 20211231, end: 20220101
  34. CEFEPIME [Concomitant]
     Active Substance: CEFEPIME HYDROCHLORIDE
     Indication: Urinary tract infection
     Route: 042
     Dates: start: 20211230, end: 20211230
  35. AMOXICILLIN\CLAVULANATE POTASSIUM [Concomitant]
     Active Substance: AMOXICILLIN\CLAVULANATE POTASSIUM
     Indication: Pyrexia
     Dates: start: 20220106, end: 20220112
  36. AMOXICILLIN\CLAVULANATE POTASSIUM [Concomitant]
     Active Substance: AMOXICILLIN\CLAVULANATE POTASSIUM
     Dates: start: 20220107, end: 20220110
  37. MAGNESIUM [Concomitant]
     Active Substance: MAGNESIUM
     Indication: Prophylaxis
     Dates: start: 20220110

REACTIONS (2)
  - Hypotension [Recovered/Resolved]
  - Diarrhoea [Recovered/Resolved]

NARRATIVE: CASE EVENT DATE: 20220103
